FAERS Safety Report 8374021-0 (Version None)
Quarter: 2012Q2

REPORT INFORMATION
  Report Type: 
  Country: None (occurrence: None)
  Receive Date: 20120517
  Receipt Date: 20120517
  Transmission Date: 20120825
  Serious: Yes (Disabling, Other)
  Sender: FDA-Public Use
  Company Number: None

PATIENT
  Sex: Female
  Weight: 66.6788 kg

DRUGS (3)
  1. ZONISAMIDE [Suspect]
  2. ZONISAMIDE [Suspect]
     Indication: CONCUSSION
     Dosage: 1 CAPSULE BY MOUTH BED TIME DAILY; 1 CAPSULE TWICE DAILY AFTER MEALS
     Route: 048
     Dates: start: 20120216, end: 20120416
  3. ZONISAMIDE [Suspect]
     Indication: CONVULSION
     Dosage: 1 CAPSULE BY MOUTH BED TIME DAILY; 1 CAPSULE TWICE DAILY AFTER MEALS
     Route: 048
     Dates: start: 20120216, end: 20120416

REACTIONS (3)
  - RASH PRURITIC [None]
  - SLEEP DISORDER [None]
  - SKIN DISCOLOURATION [None]
